FAERS Safety Report 8255013-9 (Version None)
Quarter: 2012Q2

REPORT INFORMATION
  Report Type: 
  Country: None (occurrence: None)
  Receive Date: 20120403
  Receipt Date: 20120323
  Transmission Date: 20120825
  Serious: Yes (Other)
  Sender: FDA-Public Use
  Company Number: CA-JNJFOC-20120311866

PATIENT
  Sex: Male
  Weight: 95 kg

DRUGS (9)
  1. FOLIC ACID [Concomitant]
     Route: 048
  2. METHOTREXATE [Concomitant]
     Route: 048
  3. RISEDRONATE SODIUM [Concomitant]
     Route: 048
  4. CITALOPRAM HYDROBROMIDE [Concomitant]
     Route: 048
  5. ELAVIL [Concomitant]
     Route: 048
  6. PANTOPRAZOLE [Concomitant]
     Route: 048
  7. DICLOFENAC SODIUM [Concomitant]
     Route: 048
  8. REMICADE [Suspect]
     Indication: RHEUMATOID ARTHRITIS
     Route: 042
     Dates: start: 20020101
  9. CALCIUM CARBONATE [Concomitant]
     Route: 048

REACTIONS (3)
  - PAIN [None]
  - HYPOAESTHESIA [None]
  - BLOOD PRESSURE INCREASED [None]
